FAERS Safety Report 8852020 (Version 2)
Quarter: 2012Q4

REPORT INFORMATION
  Report Type: Report from Study
  Country: RU (occurrence: RU)
  Receive Date: 20121022
  Receipt Date: 20121126
  Transmission Date: 20130627
  Serious: Yes (Hospitalization)
  Sender: FDA-Public Use
  Company Number: US-ASTELLAS-2012US010171

PATIENT
  Age: 75 Year
  Sex: Male
  Weight: 85 kg

DRUGS (4)
  1. BLINDED ERLOTINIB TABLET [Suspect]
     Indication: NON-SMALL CELL LUNG CANCER
     Dosage: QD
     Route: 048
     Dates: start: 20120802, end: 20120829
  2. DACOMITINIB [Suspect]
     Indication: NON-SMALL CELL LUNG CANCER
     Dosage: QD
     Route: 065
     Dates: start: 20120802, end: 20120829
  3. LOPERAMIDE [Concomitant]
     Indication: DIARRHOEA
     Dosage: UNK
     Route: 065
     Dates: start: 20120820
  4. GLICLAZIDE [Concomitant]
     Indication: DIABETES MELLITUS
     Dosage: UNK
     Route: 065
     Dates: start: 201112

REACTIONS (4)
  - Atrial fibrillation [Recovered/Resolved]
  - Asthenia [Unknown]
  - Dyspnoea [Unknown]
  - Decreased appetite [Unknown]
